FAERS Safety Report 8227058-6 (Version None)
Quarter: 2012Q1

REPORT INFORMATION
  Report Type: 
  Country: None (occurrence: None)
  Receive Date: 20120322
  Receipt Date: 20120316
  Transmission Date: 20120608
  Serious: No
  Sender: FDA-Public Use
  Company Number: US-PFIZER INC-2012071935

PATIENT
  Age: 23 Year
  Sex: Female

DRUGS (2)
  1. PREMARIN [Suspect]
     Indication: MENORRHAGIA
  2. PREMARIN [Suspect]
     Indication: OFF LABEL USE
     Dosage: 1.25 MG, 10 TABLETS AT ONCE
     Dates: start: 20120314

REACTIONS (3)
  - FATIGUE [None]
  - INCORRECT DOSE ADMINISTERED [None]
  - SOMNOLENCE [None]
